FAERS Safety Report 10042360 (Version 4)
Quarter: 2014Q2

REPORT INFORMATION
  Report Type: Spontaneous
  Country: DE (occurrence: JP)
  Receive Date: 20140327
  Receipt Date: 20140618
  Transmission Date: 20141212
  Serious: Yes (Hospitalization, Other)
  Sender: FDA-Public Use
  Company Number: JP-FRI-1000065805

PATIENT
  Age: 83 Year
  Sex: Male
  Weight: 54 kg

DRUGS (3)
  1. MEMANTINE [Suspect]
     Indication: DEMENTIA ALZHEIMER^S TYPE
     Dosage: 20 MG
     Route: 048
     Dates: start: 20130801, end: 20140309
  2. TIARYL [Suspect]
     Dosage: 25 MG
     Dates: start: 20120630, end: 20140309
  3. ARICEPT [Concomitant]
     Dosage: 10 MG
     Dates: start: 20080319

REACTIONS (2)
  - Convulsion [Recovered/Resolved]
  - Depressed level of consciousness [Recovered/Resolved]
